FAERS Safety Report 4262388-4 (Version None)
Quarter: 2004Q1

REPORT INFORMATION
  Report Type: 
  Country: None (occurrence: None)
  Receive Date: 20040102
  Receipt Date: 20031021
  Transmission Date: 20041129
  Serious: Yes (Hospitalization)
  Sender: FDA-Public Use
  Company Number: PHBS2003CA11765

PATIENT
  Age: 74 Year
  Sex: Male

DRUGS (2)
  1. GLEEVEC [Suspect]
     Indication: CHRONIC MYELOID LEUKAEMIA
     Dosage: 100 MG/D
     Route: 048
     Dates: start: 20031017, end: 20031017
  2. PREDNISONE [Concomitant]
     Dosage: 200 MG/D
     Route: 048
     Dates: start: 20031017, end: 20031017

REACTIONS (11)
  - ARTHRALGIA [None]
  - BODY TEMPERATURE INCREASED [None]
  - CHEST WALL PAIN [None]
  - DERMATITIS EXFOLIATIVE [None]
  - HAEMOGLOBIN DECREASED [None]
  - HAEMORRHAGE [None]
  - PLATELET COUNT DECREASED [None]
  - PRURITUS [None]
  - RASH ERYTHEMATOUS [None]
  - SERUM SICKNESS [None]
  - WHITE BLOOD CELL COUNT [None]
